FAERS Safety Report 10031288 (Version 2)
Quarter: 2014Q1

REPORT INFORMATION
  Report Type: Spontaneous
  Country: JP (occurrence: JP)
  Receive Date: 20140324
  Receipt Date: 20140326
  Transmission Date: 20141002
  Serious: Yes (Hospitalization)
  Sender: FDA-Public Use
  Company Number: JP-BRISTOL-MYERS SQUIBB COMPANY-20550844

PATIENT
  Age: 60 Year
  Sex: Male

DRUGS (2)
  1. BARACLUDE TABS 0.5 MG [Suspect]
     Indication: HEPATIC CIRRHOSIS
     Route: 048
     Dates: start: 20131205
  2. URSO [Concomitant]
     Route: 048
     Dates: start: 20130801

REACTIONS (1)
  - Diabetes mellitus [Not Recovered/Not Resolved]
